FAERS Safety Report 7960383-2 (Version None)
Quarter: 2011Q4

REPORT INFORMATION
  Report Type: 
  Country: None (occurrence: None)
  Receive Date: 20111206
  Receipt Date: 20111129
  Transmission Date: 20120403
  Serious: Yes (Death, Other)
  Sender: FDA-Public Use
  Company Number: GB-ROCHE-1011715

PATIENT
  Sex: Male

DRUGS (12)
  1. NITROLINGUAL [Concomitant]
  2. ASPIRIN [Concomitant]
  3. LUCENTIS [Suspect]
     Indication: PRODUCT USED FOR UNKNOWN INDICATION
     Route: 050
     Dates: start: 20100113
  4. LUCENTIS [Suspect]
     Route: 050
     Dates: start: 20100506
  5. GLICLAZIDE [Concomitant]
  6. TAMSULOSIN HYDROCHLORIDE [Concomitant]
  7. WARFARIN SODIUM [Concomitant]
  8. LUCENTIS [Suspect]
     Route: 050
     Dates: start: 20100311
  9. ADCAL [Concomitant]
  10. LUCENTIS [Suspect]
     Route: 050
     Dates: start: 20100407
  11. SIMVASTATIN [Concomitant]
  12. ISOTARD [Concomitant]

REACTIONS (6)
  - RETINAL HAEMORRHAGE [None]
  - BLINDNESS UNILATERAL [None]
  - MOUTH ULCERATION [None]
  - LYMPHOPROLIFERATIVE DISORDER [None]
  - WHITE BLOOD CELL COUNT INCREASED [None]
  - DEATH [None]
